FAERS Safety Report 5779580-X (Version None)
Quarter: 2008Q2

REPORT INFORMATION
  Report Type: 
  Country: None (occurrence: None)
  Receive Date: 20080619
  Receipt Date: 20071227
  Transmission Date: 20081010
  Serious: No
  Sender: FDA-Public Use
  Company Number: US-ASTRAZENECA-2007UW29033

PATIENT
  Age: 77 Year
  Sex: Male
  Weight: 74.8 kg

DRUGS (9)
  1. ATACAND HCT [Suspect]
     Dosage: 16/12.5 MG
     Route: 048
     Dates: start: 20070501
  2. ATACAND HCT [Suspect]
     Dosage: 32/12.5 MG
     Route: 048
  3. PREDNISONE TAB [Concomitant]
  4. GEMFIBROZIL [Concomitant]
  5. PRAVACHOL [Concomitant]
  6. ZETIA [Concomitant]
  7. PROTONIX [Concomitant]
  8. SYNTHROID [Concomitant]
  9. OMEGA 3 [Concomitant]

REACTIONS (1)
  - DROOLING [None]
